FAERS Safety Report 23621533 (Version 1)
Quarter: 2024Q1

REPORT INFORMATION
  Report Type: Spontaneous
  Country: US (occurrence: None)
  Receive Date: 20240311
  Receipt Date: 20240311
  Transmission Date: 20240410
  Serious: Yes (Death)
  Sender: FDA-Public Use
  Company Number: None

PATIENT
  Age: 62 Year
  Sex: Female

DRUGS (1)
  1. KADCYLA [Suspect]
     Active Substance: ADO-TRASTUZUMAB EMTANSINE
     Indication: Breast cancer female
     Dosage: OTHER FREQUENCY : Q3WEEKS;?
     Route: 042
     Dates: start: 20230629, end: 20240221

REACTIONS (2)
  - Breast cancer female [None]
  - Malignant neoplasm progression [None]
